FAERS Safety Report 6682573-1 (Version None)
Quarter: 2010Q2

REPORT INFORMATION
  Report Type: 
  Country: None (occurrence: None)
  Receive Date: 20100414
  Receipt Date: 20100414
  Transmission Date: 20101027
  Serious: Yes (Other)
  Sender: FDA-Public Use
  Company Number: None

PATIENT
  Age: 70 Year
  Sex: Female
  Weight: 70.5 kg

DRUGS (2)
  1. COVARYX HS [Suspect]
  2. ESTRATEST H.S. [Suspect]

REACTIONS (8)
  - AGGRESSION [None]
  - AGITATION [None]
  - ANGER [None]
  - DEPRESSION [None]
  - FEELING COLD [None]
  - HOMICIDAL IDEATION [None]
  - PRODUCT SUBSTITUTION ISSUE [None]
  - THINKING ABNORMAL [None]
